FAERS Safety Report 4787496-0 (Version None)
Quarter: 2005Q4

REPORT INFORMATION
  Report Type: 
  Country: None (occurrence: None)
  Receive Date: 20051004
  Receipt Date: 20050906
  Transmission Date: 20060501
  Serious: Yes (Hospitalization)
  Sender: FDA-Public Use
  Company Number: US-BRISTOL-MYERS SQUIBB COMPANY-13101696

PATIENT
  Age: 71 Year
  Sex: Male

DRUGS (16)
  1. CETUXIMAB [Suspect]
     Indication: LUNG CANCER METASTATIC
     Dosage: LAST ADMINISTERED ON 20-SEP-2005 CYCLE 2
     Route: 042
     Dates: start: 20050830, end: 20050830
  2. CARBOPLATIN [Suspect]
     Indication: LUNG CANCER METASTATIC
     Route: 042
     Dates: start: 20050830, end: 20050830
  3. TAXOTERE [Suspect]
     Indication: LUNG CANCER METASTATIC
     Route: 042
     Dates: start: 20050830, end: 20050830
  4. LEXAPRO [Concomitant]
     Dates: start: 20050815
  5. AVAPRO [Concomitant]
     Dates: start: 20030101
  6. ZOCOR [Concomitant]
     Dates: start: 20000101
  7. COREG [Concomitant]
     Dates: start: 20000101
  8. SPIRONOLACTONE [Concomitant]
     Dates: start: 20030101
  9. IMDUR [Concomitant]
     Dates: start: 20040101
  10. LANOXIN [Concomitant]
     Dates: start: 19920101
  11. ACEON [Concomitant]
     Dates: start: 20040101
  12. NORVASC [Concomitant]
     Dates: start: 19960101
  13. LASIX [Concomitant]
     Dates: start: 20000101
  14. GLIPIZIDE [Concomitant]
     Dates: start: 19870101
  15. INSULIN [Concomitant]
     Dates: start: 19940101
  16. BENADRYL [Concomitant]
     Indication: PREMEDICATION
     Route: 042
     Dates: start: 20050920, end: 20050920

REACTIONS (4)
  - ATRIAL FIBRILLATION [None]
  - DRUG HYPERSENSITIVITY [None]
  - HYPERSENSITIVITY [None]
  - HYPONATRAEMIA [None]
